FAERS Safety Report 4616424-3 (Version None)
Quarter: 2005Q1

REPORT INFORMATION
  Report Type: 
  Country: None (occurrence: None)
  Receive Date: 20050318
  Receipt Date: 20050307
  Transmission Date: 20050727
  Serious: Yes (Other)
  Sender: FDA-Public Use
  Company Number: 2004112624

PATIENT
  Sex: Female

DRUGS (5)
  1. DETROL LA [Suspect]
     Indication: ILL-DEFINED DISORDER
     Dosage: DAILY
     Dates: start: 20030101
  2. PREDNISONE TAB [Suspect]
     Indication: ARTHRITIS
     Dosage: 20 MG (20 MG, 1 IN 1 D), ORAL
     Route: 048
     Dates: start: 20050101
  3. INSULIN [Concomitant]
  4. METOPROLOL TARTRATE [Concomitant]
  5. PRINZIDE [Concomitant]

REACTIONS (5)
  - BLOOD GLUCOSE INCREASED [None]
  - CYSTITIS [None]
  - FEELING ABNORMAL [None]
  - HEADACHE [None]
  - PNEUMONIA MYCOPLASMAL [None]
